FAERS Safety Report 7045275-8 (Version None)
Quarter: 2010Q4

REPORT INFORMATION
  Report Type: 
  Country: None (occurrence: None)
  Receive Date: 20101014
  Receipt Date: 20100802
  Transmission Date: 20110411
  Serious: No
  Sender: FDA-Public Use
  Company Number: US-ALLERGAN-1010003US

PATIENT
  Age: 66 Year
  Sex: Female

DRUGS (4)
  1. LATISSE [Suspect]
     Indication: GROWTH OF EYELASHES
     Dosage: 1 GTT, QHS
     Route: 061
     Dates: start: 20090601
  2. RESTASIS [Concomitant]
     Indication: DRY EYE
     Dosage: 1 GTT, BID
     Route: 047
  3. BOTOX COSMETIC [Concomitant]
     Indication: SKIN WRINKLING
     Dosage: UNK
     Route: 030
  4. JUVEDERM [Concomitant]
     Indication: SKIN WRINKLING

REACTIONS (2)
  - DRUG ADMINISTERED AT INAPPROPRIATE SITE [None]
  - VITREOUS FLOATERS [None]
